FAERS Safety Report 10033748 (Version 2)
Quarter: 2014Q2

REPORT INFORMATION
  Report Type: Spontaneous
  Country: US (occurrence: US)
  Receive Date: 20140325
  Receipt Date: 20140423
  Transmission Date: 20141212
  Serious: No
  Sender: FDA-Public Use
  Company Number: US-BIOGENIDEC-2014BI024613

PATIENT
  Age: 53 Year
  Sex: Female

DRUGS (14)
  1. TECFIDERA [Suspect]
     Indication: RELAPSING-REMITTING MULTIPLE SCLEROSIS
     Route: 048
     Dates: start: 20140107
  2. TECFIDERA [Suspect]
     Indication: RELAPSING-REMITTING MULTIPLE SCLEROSIS
     Route: 048
     Dates: start: 20140310
  3. TECFIDERA [Suspect]
     Indication: RELAPSING-REMITTING MULTIPLE SCLEROSIS
     Route: 048
  4. AVONEX [Concomitant]
     Indication: MULTIPLE SCLEROSIS
     Route: 030
     Dates: start: 20030814
  5. CRESTOR [Concomitant]
  6. DEXILANT [Concomitant]
  7. DICYCLOMINE [Concomitant]
  8. HYDROCORTISONE [Concomitant]
  9. PREMARIN [Concomitant]
  10. VAGIFEM [Concomitant]
  11. VIT D3 [Concomitant]
  12. XANAX [Concomitant]
  13. XIFAXAN [Concomitant]
  14. VITAMIN E [Concomitant]

REACTIONS (10)
  - Erythema [Not Recovered/Not Resolved]
  - Flushing [Unknown]
  - Abdominal distension [Unknown]
  - Paraesthesia [Unknown]
  - Rash [Unknown]
  - Burning sensation [Unknown]
  - Pruritus [Unknown]
  - Dyspepsia [Unknown]
  - Diarrhoea [Unknown]
  - Gastritis [Unknown]
